FAERS Safety Report 5077828-0 (Version None)
Quarter: 2006Q3

REPORT INFORMATION
  Report Type: 
  Country: None (occurrence: None)
  Receive Date: 20060810
  Receipt Date: 20060727
  Transmission Date: 20061208
  Serious: Yes (Hospitalization)
  Sender: FDA-Public Use
  Company Number: BEWYE390427JUL06

PATIENT
  Age: 65 Year
  Sex: Female
  Weight: 78.3 kg

DRUGS (7)
  1. ENBREL [Suspect]
     Indication: PSORIATIC ARTHROPATHY
     Route: 058
     Dates: start: 20040824, end: 20060314
  2. FOLIC ACID [Concomitant]
  3. LEDERTREXATE [Concomitant]
  4. VITAMIN B COMPLEX CAP [Concomitant]
  5. XANAX [Concomitant]
  6. EMCONCOR [Concomitant]
  7. DAFALGAN [Concomitant]

REACTIONS (1)
  - PLEURAL EFFUSION [None]
